FAERS Safety Report 11423817 (Version 1)
Quarter: 2015Q3

REPORT INFORMATION
  Report Type: Spontaneous
  Country: US (occurrence: US)
  Receive Date: 20150827
  Receipt Date: 20150827
  Transmission Date: 20151125
  Serious: No
  Sender: FDA-Public Use
  Company Number: US-JNJFOC-20150415590

PATIENT
  Age: 12 Month
  Sex: Female
  Weight: 10.43 kg

DRUGS (1)
  1. CHILDRENS MOTRIN [Suspect]
     Active Substance: IBUPROFEN
     Indication: PRODUCT USED FOR UNKNOWN INDICATION
     Dosage: 1 TSP
     Route: 065
     Dates: start: 20150417, end: 20150417

REACTIONS (1)
  - Drug administered to patient of inappropriate age [Unknown]
